FAERS Safety Report 18458218 (Version 1)
Quarter: 2020Q4

REPORT INFORMATION
  Report Type: Report from Study
  Country: AR (occurrence: AR)
  Receive Date: 20201103
  Receipt Date: 20201103
  Transmission Date: 20210114
  Serious: Yes (Other)
  Sender: FDA-Public Use
  Company Number: PHHY2018AR116356

PATIENT
  Age: 43 Year
  Sex: Female

DRUGS (2)
  1. GILENYA [Suspect]
     Active Substance: FINGOLIMOD HYDROCHLORIDE
     Indication: MULTIPLE SCLEROSIS
     Dosage: 0.5 MG, QD
     Route: 065
     Dates: start: 201608
  2. GILENYA [Suspect]
     Active Substance: FINGOLIMOD HYDROCHLORIDE
     Dosage: 1 IU, QD
     Route: 048
     Dates: start: 20160101, end: 20180701

REACTIONS (6)
  - Sensory disturbance [Unknown]
  - Limb deformity [Unknown]
  - Central nervous system lesion [Unknown]
  - Nervous system disorder [Unknown]
  - Drug ineffective [Unknown]
  - Sensory loss [Unknown]

NARRATIVE: CASE EVENT DATE: 20180701
